FAERS Safety Report 7982611-X (Version None)
Quarter: 2011Q4

REPORT INFORMATION
  Report Type: 
  Country: None (occurrence: None)
  Receive Date: 20111215
  Receipt Date: 20111025
  Transmission Date: 20120403
  Serious: Yes (Other)
  Sender: FDA-Public Use
  Company Number: JP-GLAXOSMITHKLINE-B0758898A

PATIENT
  Sex: Female

DRUGS (5)
  1. LAMICTAL [Suspect]
     Indication: DEPRESSION
     Dosage: 100MG PER DAY
     Route: 048
     Dates: start: 20110912, end: 20111017
  2. TETRAMIDE [Suspect]
     Indication: DEPRESSION
  3. PAXIL [Suspect]
     Indication: DEPRESSION
     Route: 048
  4. CLARITHROMYCIN [Concomitant]
     Indication: PNEUMONIA
     Dosage: 400MG PER DAY
     Route: 048
     Dates: start: 20111008, end: 20111017
  5. DEPAS [Concomitant]
     Indication: INSOMNIA
     Dosage: 1MG PER DAY
     Route: 048
     Dates: start: 20110926, end: 20111017

REACTIONS (4)
  - ABDOMINAL DISCOMFORT [None]
  - NAUSEA [None]
  - HEPATIC FUNCTION ABNORMAL [None]
  - DRUG ERUPTION [None]
